FAERS Safety Report 8266224-0 (Version None)
Quarter: 2012Q2

REPORT INFORMATION
  Report Type: 
  Country: None (occurrence: None)
  Receive Date: 20120406
  Receipt Date: 20120327
  Transmission Date: 20120825
  Serious: Yes (Hospitalization)
  Sender: FDA-Public Use
  Company Number: JP-FRI-1000028442

PATIENT
  Age: 65 Year
  Sex: Male

DRUGS (4)
  1. DOGMATYL [Concomitant]
     Route: 048
  2. LEXAPRO [Suspect]
     Dosage: 20 MG
     Route: 048
     Dates: start: 20110801
  3. ANAFRANIL [Concomitant]
     Route: 048
  4. CYMBALTA [Concomitant]
     Route: 048

REACTIONS (1)
  - LOSS OF CONSCIOUSNESS [None]
